FAERS Safety Report 12262357 (Version 2)
Quarter: 2016Q2

REPORT INFORMATION
  Report Type: Spontaneous
  Country: CZ (occurrence: CZ)
  Receive Date: 20160413
  Receipt Date: 20160415
  Transmission Date: 20160815
  Serious: Yes (Other)
  Sender: FDA-Public Use
  Company Number: CZ-ALVOGEN-2016-ALVOGEN-023465

PATIENT
  Age: 53 Month
  Sex: Female
  Weight: 2.35 kg

DRUGS (6)
  1. CYTARABINE. [Suspect]
     Active Substance: CYTARABINE
     Indication: MEDULLOBLASTOMA
     Dosage: 2 MG PER KG WAS ADMINISTERED MONTHLY
  2. DOXORUBICIN [Suspect]
     Active Substance: DOXORUBICIN
     Indication: MEDULLOBLASTOMA
  3. IRINOTECAN HYDROCHLORIDE. [Suspect]
     Active Substance: IRINOTECAN HYDROCHLORIDE
     Indication: MEDULLOBLASTOMA
  4. VINCRISTINE SULFATE. [Suspect]
     Active Substance: VINCRISTINE SULFATE
     Indication: MEDULLOBLASTOMA
  5. BEVACIZUMAB [Suspect]
     Active Substance: BEVACIZUMAB
     Indication: MEDULLOBLASTOMA
  6. METHOTREXATE [Suspect]
     Active Substance: METHOTREXATE
     Indication: MEDULLOBLASTOMA

REACTIONS (10)
  - Pancytopenia [Recovered/Resolved]
  - Headache [Recovered/Resolved]
  - Mucosal toxicity [Recovered/Resolved]
  - Skin toxicity [Recovered/Resolved]
  - Haemodynamic instability [Recovered/Resolved]
  - Infection [Unknown]
  - Toxicity to various agents [Unknown]
  - Psychomotor hyperactivity [Recovered/Resolved]
  - Febrile neutropenia [Unknown]
  - Sepsis [Recovered/Resolved]
